FAERS Safety Report 10046557 (Version 1)
Quarter: 2014Q1

REPORT INFORMATION
  Report Type: Spontaneous
  Country: US (occurrence: US)
  Receive Date: 20140331
  Receipt Date: 20140331
  Transmission Date: 20141002
  Serious: No
  Sender: FDA-Public Use
  Company Number: US-BIOGENIDEC-2014BI028222

PATIENT
  Age: 65 Year
  Sex: Female

DRUGS (10)
  1. TECFIDERA [Suspect]
     Indication: MULTIPLE SCLEROSIS
     Route: 048
     Dates: start: 201403
  2. TECFIDERA [Suspect]
     Indication: MULTIPLE SCLEROSIS
     Route: 048
  3. CALTRATE 600 + D [Concomitant]
  4. DETROL LA [Concomitant]
  5. METOPROLOL TARTRATE [Concomitant]
  6. GABAPENTIN [Concomitant]
  7. LISINOPRIL [Concomitant]
  8. BACLOFEN [Concomitant]
  9. HYDRALAZINE [Concomitant]
  10. CELEXA [Concomitant]

REACTIONS (2)
  - Sensation of heaviness [Recovered/Resolved]
  - Feeling hot [Recovered/Resolved]
